FAERS Safety Report 14971690 (Version 1)
Quarter: 2018Q2

REPORT INFORMATION
  Report Type: Spontaneous
  Country: US (occurrence: US)
  Receive Date: 20180604
  Receipt Date: 20180604
  Transmission Date: 20180711
  Serious: No
  Sender: FDA-Public Use
  Company Number: US-BIOGEN-2018BI00586185

PATIENT
  Sex: Female

DRUGS (2)
  1. AVONEX [Suspect]
     Active Substance: INTERFERON BETA-1A
     Route: 030
  2. AVONEX [Suspect]
     Active Substance: INTERFERON BETA-1A
     Indication: MULTIPLE SCLEROSIS
     Route: 065
     Dates: start: 20120824

REACTIONS (10)
  - Aphasia [Unknown]
  - Stress [Unknown]
  - Lack of injection site rotation [Unknown]
  - Intervertebral disc protrusion [Unknown]
  - Disturbance in attention [Unknown]
  - Pain in extremity [Unknown]
  - Anxiety [Unknown]
  - Memory impairment [Unknown]
  - Carpal tunnel syndrome [Unknown]
  - Arthralgia [Unknown]
